FAERS Safety Report 7872175-3 (Version None)
Quarter: 2011Q4

REPORT INFORMATION
  Report Type: 
  Country: None (occurrence: None)
  Receive Date: 20111029
  Receipt Date: 20110315
  Transmission Date: 20120403
  Serious: No
  Sender: FDA-Public Use
  Company Number: US-AMGEN-USASP2011014256

PATIENT
  Age: 69 Year
  Sex: Female

DRUGS (2)
  1. ENBREL [Suspect]
     Indication: PSORIASIS
  2. ENBREL [Suspect]
     Indication: PSORIATIC ARTHROPATHY
     Dosage: 50 MG, QWK
     Dates: start: 20110204

REACTIONS (5)
  - HYPERSENSITIVITY [None]
  - SEASONAL ALLERGY [None]
  - MUSCULOSKELETAL PAIN [None]
  - SINUS CONGESTION [None]
  - ARTHRALGIA [None]
